FAERS Safety Report 26114158 (Version 1)
Quarter: 2025Q4

REPORT INFORMATION
  Report Type: Spontaneous
  Country: JP (occurrence: JP)
  Receive Date: 20251202
  Receipt Date: 20251202
  Transmission Date: 20260117
  Serious: Yes (Hospitalization, Other)
  Sender: AKEBIA THERAPEUTICS
  Company Number: JP-MTPC-MTPC2025-0020857

PATIENT
  Age: 74 Year
  Sex: Male

DRUGS (1)
  1. VADADUSTAT [Suspect]
     Active Substance: VADADUSTAT
     Indication: Product used for unknown indication
     Dosage: UNK
     Route: 065

REACTIONS (2)
  - Retinal vein occlusion [Not Recovered/Not Resolved]
  - Peritonitis [Recovered/Resolved]
